FAERS Safety Report 9528777 (Version 1)
Quarter: 2013Q1

REPORT INFORMATION
  Report Type: Spontaneous
  Country: US (occurrence: None)
  Receive Date: 20130322
  Receipt Date: 20130322
  Transmission Date: 20140127
  Serious: Yes (Other)
  Sender: FDA-Public Use
  Company Number: 1-0212-08

PATIENT
  Sex: Female

DRUGS (2)
  1. DERMA-SMOOTHE-FS [Suspect]
     Indication: ECZEMA
     Route: 061
  2. CLINIQUE COSMETICS [Concomitant]

REACTIONS (3)
  - Dizziness [None]
  - Tremor [None]
  - Nausea [None]
